FAERS Safety Report 6716572-8 (Version None)
Quarter: 2010Q2

REPORT INFORMATION
  Report Type: 
  Country: None (occurrence: None)
  Receive Date: 20100507
  Receipt Date: 20100430
  Transmission Date: 20101027
  Serious: Yes (Hospitalization, Other)
  Sender: FDA-Public Use
  Company Number: CA-AMGEN-KDL399471

PATIENT
  Sex: Female
  Weight: 85.4 kg

DRUGS (9)
  1. ENBREL [Suspect]
     Indication: RHEUMATOID ARTHRITIS
     Dates: start: 20091209, end: 20100312
  2. AMITRIPTLINE HYDROCHLORIDE TAB [Concomitant]
  3. HYDROXYQUINOLINE [Concomitant]
  4. METHOTREXATE [Concomitant]
  5. SYNTHROID [Concomitant]
  6. COZAAR [Concomitant]
  7. INDAPAMIDE [Concomitant]
  8. CADUET [Concomitant]
  9. FOLIC ACID [Concomitant]

REACTIONS (9)
  - COLITIS [None]
  - DECREASED APPETITE [None]
  - HYPOKALAEMIA [None]
  - LEUKOCYTOSIS [None]
  - LOCALISED INTRAABDOMINAL FLUID COLLECTION [None]
  - MALAISE [None]
  - NAUSEA [None]
  - NEOPLASM MALIGNANT [None]
  - NEUTROPHIL COUNT INCREASED [None]
